FAERS Safety Report 21468041 (Version 2)
Quarter: 2022Q4

REPORT INFORMATION
  Report Type: Spontaneous
  Country: CN (occurrence: CN)
  Receive Date: 20221017
  Receipt Date: 20221018
  Transmission Date: 20230113
  Serious: Yes (Hospitalization)
  Sender: FDA-Public Use
  Company Number: CN-BoehringerIngelheim-2022-BI-196690

PATIENT
  Age: 79 Year
  Sex: Female
  Weight: 55 kg

DRUGS (3)
  1. ALTEPLASE [Suspect]
     Active Substance: ALTEPLASE
     Indication: Thrombolysis
     Dosage: INTRAVENOUS BOLUS INJECTION WITHIN 1 MINUTE
     Route: 040
     Dates: start: 20220928, end: 20220928
  2. ALTEPLASE [Suspect]
     Active Substance: ALTEPLASE
     Dosage: INTRAVENOUS PUMP WAS COMPLETED WITHIN 1 HOUR
     Route: 042
     Dates: start: 20220928, end: 20220928
  3. URAPIDIL [Concomitant]
     Active Substance: URAPIDIL

REACTIONS (4)
  - Haemorrhage intracranial [Not Recovered/Not Resolved]
  - Upper gastrointestinal haemorrhage [Not Recovered/Not Resolved]
  - Gingival bleeding [Not Recovered/Not Resolved]
  - Blood pressure increased [Not Recovered/Not Resolved]

NARRATIVE: CASE EVENT DATE: 20220928
